FAERS Safety Report 20043670 (Version 2)
Quarter: 2022Q1

REPORT INFORMATION
  Report Type: Spontaneous
  Country: US (occurrence: US)
  Receive Date: 20211108
  Receipt Date: 20220103
  Transmission Date: 20220424
  Serious: Yes (Other)
  Sender: FDA-Public Use
  Company Number: US-BAYER-2021A241613

PATIENT
  Age: 37 Year
  Sex: Female

DRUGS (4)
  1. GADAVIST [Suspect]
     Active Substance: GADOBUTROL
     Dosage: 5 ML, ONCE
     Dates: start: 20200915, end: 20200915
  2. TERBINAFINE [Concomitant]
     Active Substance: TERBINAFINE
     Indication: Mycotic allergy
     Dosage: UNK
     Dates: start: 20210315
  3. VORICONAZOLE [Concomitant]
     Active Substance: VORICONAZOLE
     Indication: Mycotic allergy
     Dosage: UNK
     Dates: start: 20210615
  4. DOXYCYCLINE [Concomitant]
     Active Substance: DOXYCYCLINE
     Indication: Lyme disease
     Dates: start: 20210615, end: 20210915

REACTIONS (14)
  - Skin burning sensation [Not Recovered/Not Resolved]
  - Increased tendency to bruise [Recovered/Resolved with Sequelae]
  - Neoplasm skin [Recovered/Resolved with Sequelae]
  - Disturbance in attention [Recovering/Resolving]
  - Hypersensitivity vasculitis [Recovering/Resolving]
  - Alopecia [Recovering/Resolving]
  - Endothelial dysfunction [Recovering/Resolving]
  - Joint instability [Recovering/Resolving]
  - Food allergy [Recovering/Resolving]
  - Occipital neuralgia [Recovering/Resolving]
  - Myopathy [Recovering/Resolving]
  - Lyme disease [None]
  - Pulmonary fibrosis [None]
  - Metal poisoning [None]

NARRATIVE: CASE EVENT DATE: 20200917
